FAERS Safety Report 4278227-1 (Version None)
Quarter: 2004Q1

REPORT INFORMATION
  Report Type: 
  Country: None (occurrence: None)
  Receive Date: 20040121
  Receipt Date: 20040109
  Transmission Date: 20041129
  Serious: Yes (Hospitalization)
  Sender: FDA-Public Use
  Company Number: K200400036

PATIENT
  Age: 49 Year
  Sex: Male
  Weight: 76.8 kg

DRUGS (7)
  1. SEPTRA [Suspect]
     Indication: PNEUMOCYSTIS CARINII INFECTION
     Dosage: ORAL
     Route: 048
     Dates: start: 20030413, end: 20031014
  2. VALTREX [Suspect]
     Dosage: 500 MG, QD, ORAL
     Route: 048
     Dates: start: 20030412, end: 20031014
  3. LACTIC ACID(LACTIC ACID) [Suspect]
     Indication: ENTERITIS
     Dosage: ORAL
     Route: 048
     Dates: start: 20030224, end: 20031014
  4. ITRACONAZOLE [Concomitant]
  5. TACROLIMUS (TACROLIMUS) [Concomitant]
  6. IMMUNOSUPPRESSIVE AGENTS [Concomitant]
  7. METHOTREXATE [Concomitant]

REACTIONS (6)
  - ANAEMIA [None]
  - FUNGAL INFECTION [None]
  - PETECHIAE [None]
  - PYREXIA [None]
  - THROMBOCYTOPENIA [None]
  - VIRAL INFECTION [None]
